FAERS Safety Report 7227089-9 (Version None)
Quarter: 2011Q1

REPORT INFORMATION
  Report Type: 
  Country: None (occurrence: None)
  Receive Date: 20110114
  Receipt Date: 20110105
  Transmission Date: 20110831
  Serious: Yes (Other)
  Sender: FDA-Public Use
  Company Number: US-ROCHE-745823

PATIENT
  Sex: Female
  Weight: 57 kg

DRUGS (9)
  1. ACTEMRA [Suspect]
     Dosage: 4 MG/KG; FORM INFUSION
     Route: 042
     Dates: start: 20101127
  2. ACTEMRA [Suspect]
     Route: 042
     Dates: start: 20101226
  3. LOVASTATIN [Concomitant]
  4. EDECRIN [Concomitant]
     Indication: HYPERTENSION
  5. METHOTREXATE [Concomitant]
  6. OMEPRAZOLE [Concomitant]
     Dosage: IN THE MORNING
  7. MICARDIS [Concomitant]
     Indication: HYPERTENSION
  8. SYNTHROID [Concomitant]
  9. TEMAZEPAM [Concomitant]

REACTIONS (3)
  - ABASIA [None]
  - RHEUMATOID ARTHRITIS [None]
  - JOINT SWELLING [None]
